FAERS Safety Report 18500955 (Version 1)
Quarter: 2020Q4

REPORT INFORMATION
  Report Type: Spontaneous
  Country: US (occurrence: US)
  Receive Date: 20201113
  Receipt Date: 20201113
  Transmission Date: 20210114
  Serious: Yes (Hospitalization, Other)
  Sender: FDA-Public Use
  Company Number: None

PATIENT
  Age: 64 Year
  Sex: Male
  Weight: 80.55 kg

DRUGS (8)
  1. FISH OIL [Concomitant]
     Active Substance: FISH OIL
  2. XANAX [Concomitant]
     Active Substance: ALPRAZOLAM
  3. PRESERVISION [Concomitant]
     Active Substance: MINERALS\VITAMINS
  4. OLANZAPINE 2.5MG TABLETS [Suspect]
     Active Substance: OLANZAPINE
     Indication: ANXIETY
     Dosage: ?          QUANTITY:1 TABLET(S);?
     Route: 048
     Dates: start: 20181120, end: 20190104
  5. OLANZAPINE 2.5MG TABLETS [Suspect]
     Active Substance: OLANZAPINE
     Indication: DELUSION
     Dosage: ?          QUANTITY:1 TABLET(S);?
     Route: 048
     Dates: start: 20181120, end: 20190104
  6. VITAMIN B12 [Concomitant]
     Active Substance: CYANOCOBALAMIN
  7. PEPCID [Concomitant]
     Active Substance: FAMOTIDINE
  8. VITAMIN D3 [Concomitant]
     Active Substance: CHOLECALCIFEROL

REACTIONS (3)
  - Breast mass [None]
  - Inflammatory myofibroblastic tumour [None]
  - Blood prolactin increased [None]

NARRATIVE: CASE EVENT DATE: 20190930
